FAERS Safety Report 4551852-6 (Version None)
Quarter: 2005Q1

REPORT INFORMATION
  Report Type: 
  Country: None (occurrence: None)
  Receive Date: 20050111
  Receipt Date: 20050104
  Transmission Date: 20050727
  Serious: Yes (Death)
  Sender: FDA-Public Use
  Company Number: FRWYE312804JAN05

PATIENT
  Age: 73 Year
  Sex: Female

DRUGS (4)
  1. EFFEXOR [Suspect]
     Dosage: 1 DOSE 1 X PER 1 DAY, ORAL
     Route: 048
     Dates: start: 20040405
  2. AMLODIPINE BESYLATE [Suspect]
     Indication: HYPERTENSION
     Dosage: 5 MG 1 X PER 1 DAY, ORAL
     Route: 048
     Dates: start: 20040405
  3. LANTUS [Suspect]
     Indication: DIABETES MELLITUS
     Dosage: 20 IU, SC
     Route: 058
     Dates: start: 20040415
  4. THALIDOMIDE (THALIDOMIDE) [Suspect]
     Indication: MULTIPLE MYELOMA
     Dosage: 300 MG 1 X PER 1 DAY, ORAL
     Route: 048
     Dates: start: 20040209

REACTIONS (4)
  - CARDIAC FAILURE [None]
  - DILATATION VENTRICULAR [None]
  - DISEASE PROGRESSION [None]
  - MULTIPLE MYELOMA [None]
